FAERS Safety Report 9917813 (Version 1)
Quarter: 2014Q1

REPORT INFORMATION
  Report Type: Report from Study
  Country: US (occurrence: US)
  Receive Date: 20140221
  Receipt Date: 20140221
  Transmission Date: 20141002
  Serious: Yes (Other)
  Sender: FDA-Public Use
  Company Number: US-ABBVIE-14P-163-1201876-00

PATIENT
  Age: 32 Year
  Sex: Female

DRUGS (2)
  1. HUMIRA [Suspect]
     Indication: CROHN^S DISEASE
     Dates: start: 2009
  2. ZANTAC [Concomitant]
     Indication: GASTROOESOPHAGEAL REFLUX DISEASE
     Route: 048

REACTIONS (16)
  - Ovarian cyst [Recovered/Resolved]
  - Polycystic ovaries [Unknown]
  - Endometriosis [Unknown]
  - Injection site pain [Unknown]
  - Injection site bruising [Unknown]
  - Feeling abnormal [Unknown]
  - Malaise [Unknown]
  - Bronchitis [Unknown]
  - Bronchitis [Unknown]
  - Pneumonia [Unknown]
  - Pertussis [Unknown]
  - Hypersensitivity [Unknown]
  - Asthma [Unknown]
  - Nasopharyngitis [Unknown]
  - Anal fistula [Unknown]
  - Aphagia [Unknown]
